FAERS Safety Report 19864675 (Version 1)
Quarter: 2021Q3

REPORT INFORMATION
  Report Type: Spontaneous
  Country: US (occurrence: US)
  Receive Date: 20210922
  Receipt Date: 20210922
  Transmission Date: 20211014
  Serious: No
  Sender: FDA-Public Use
  Company Number: US-BIOGEN-2021BI01050598

PATIENT
  Sex: Female

DRUGS (7)
  1. BACLOFEN. [Concomitant]
     Active Substance: BACLOFEN
     Route: 065
  2. TECFIDERA [Suspect]
     Active Substance: DIMETHYL FUMARATE
     Indication: MULTIPLE SCLEROSIS
     Route: 048
  3. VITAMIN D3 [Concomitant]
     Active Substance: CHOLECALCIFEROL
     Route: 065
  4. ZINC. [Concomitant]
     Active Substance: ZINC
     Route: 065
  5. ZYPREXA [Concomitant]
     Active Substance: OLANZAPINE
     Route: 065
  6. FEROSUL [Concomitant]
     Active Substance: FERROUS SULFATE
     Route: 065
  7. MAGNESIUM OXIDE. [Concomitant]
     Active Substance: MAGNESIUM OXIDE
     Route: 065

REACTIONS (2)
  - Dermal cyst [Not Recovered/Not Resolved]
  - Product dose omission issue [Unknown]
